FAERS Safety Report 6305886-1 (Version None)
Quarter: 2009Q3

REPORT INFORMATION
  Report Type: 
  Country: None (occurrence: None)
  Receive Date: 20090812
  Receipt Date: 20090722
  Transmission Date: 20100115
  Serious: Yes (Other)
  Sender: FDA-Public Use
  Company Number: US-BAYER-200922676NA

PATIENT
  Age: 59 Year
  Sex: Male
  Weight: 70 kg

DRUGS (7)
  1. LEVITRA [Suspect]
     Indication: ERECTILE DYSFUNCTION
     Dosage: 1/2 OF A 20 MG TABLET
     Dates: start: 20080901, end: 20090701
  2. LEVITRA [Suspect]
     Dosage: 1/4 OF A 20 MG TABLET
     Dates: start: 20080101
  3. LORATADINE [Concomitant]
  4. GLIPIZIDE [Concomitant]
  5. PIROXICAM [Concomitant]
  6. KLONOPIN [Concomitant]
  7. OMEPRAZOLE [Concomitant]

REACTIONS (2)
  - DIARRHOEA [None]
  - VISION BLURRED [None]
